FAERS Safety Report 19728416 (Version 1)
Quarter: 2021Q3

REPORT INFORMATION
  Report Type: Spontaneous
  Country: JP (occurrence: JP)
  Receive Date: 20210820
  Receipt Date: 20210820
  Transmission Date: 20211014
  Serious: Yes (Death, Hospitalization)
  Sender: FDA-Public Use
  Company Number: JP-COLLEGIUM PHARMACEUTICAL, INC.-2021CGM00962

PATIENT
  Age: 82 Year
  Sex: Male

DRUGS (4)
  1. ZYTIGA [Suspect]
     Active Substance: ABIRATERONE ACETATE
     Indication: HORMONE-REFRACTORY PROSTATE CANCER
     Dosage: 1000 MG, 1X/DAY
     Route: 048
     Dates: start: 20200928, end: 20210512
  2. GONAX [Concomitant]
     Active Substance: DEGARELIX
     Dosage: UNK
     Dates: start: 20191212
  3. TAPENTADOL [Suspect]
     Active Substance: TAPENTADOL
     Indication: CANCER PAIN
     Dosage: 100 MG, 1X/DAY
     Route: 048
     Dates: start: 20210322, end: 20210427
  4. RANMARK [Concomitant]
     Active Substance: DENOSUMAB
     Dosage: UNK
     Dates: start: 20200413

REACTIONS (3)
  - Malignant neoplasm progression [Fatal]
  - Cancer pain [Not Recovered/Not Resolved]
  - Hepatic cancer recurrent [Not Recovered/Not Resolved]

NARRATIVE: CASE EVENT DATE: 20210426
